FAERS Safety Report 4536308-9 (Version None)
Quarter: 2004Q4

REPORT INFORMATION
  Report Type: 
  Country: None (occurrence: None)
  Receive Date: 20041223
  Receipt Date: 20040621
  Transmission Date: 20050328
  Serious: No
  Sender: FDA-Public Use
  Company Number: US-GLAXOSMITHKLINE-A0515377A

PATIENT
  Age: 81 Year
  Sex: Female

DRUGS (3)
  1. FLONASE [Suspect]
     Indication: RHINITIS
     Dosage: 4SPR PER DAY
     Route: 045
  2. XANAX [Concomitant]
  3. TAGAMET OTC [Concomitant]

REACTIONS (5)
  - DIZZINESS [None]
  - DRUG INEFFECTIVE [None]
  - EYE PAIN [None]
  - NASAL DISCOMFORT [None]
  - NASAL DRYNESS [None]
